FAERS Safety Report 7909027-6 (Version None)
Quarter: 2012Q1

REPORT INFORMATION
  Report Type: 
  Country: None (occurrence: None)
  Receive Date: 20111111
  Receipt Date: 20111103
  Transmission Date: 20120608
  Serious: Yes (Hospitalization)
  Sender: FDA-Public Use
  Company Number: GB-PFIZER INC-2011270022

PATIENT
  Age: 65 Year
  Sex: Female

DRUGS (5)
  1. IBUPROFEN [Suspect]
     Indication: SCIATICA
     Dosage: 400 MG, 3X/DAY
     Route: 048
     Dates: start: 20110226, end: 20110228
  2. AMLODIPINE [Concomitant]
     Indication: HYPERTENSION
     Dosage: 15 MG, 1X/DAY
     Route: 048
  3. BENDROFLUAZIDE [Concomitant]
     Indication: HYPERTENSION
     Dosage: 5 MG, 1X/DAY
     Route: 048
  4. NAPROXEN [Suspect]
     Indication: SCIATICA
     Dosage: 250 MG, 3X/DAY
     Route: 048
     Dates: start: 20110225, end: 20110228
  5. ACETAMINOPHEN AND CODEINE PHOSPHATE [Concomitant]
     Indication: SCIATICA
     Dosage: 1 DF, 4X/DAY
     Route: 048

REACTIONS (2)
  - HAEMATEMESIS [None]
  - GASTROINTESTINAL HAEMORRHAGE [None]
